FAERS Safety Report 5694452-7 (Version None)
Quarter: 2008Q2

REPORT INFORMATION
  Report Type: 
  Country: None (occurrence: None)
  Receive Date: 20080404
  Receipt Date: 20080327
  Transmission Date: 20081010
  Serious: Yes (Hospitalization)
  Sender: FDA-Public Use
  Company Number: FR-BRISTOL-MYERS SQUIBB COMPANY-14131668

PATIENT
  Age: 64 Year
  Sex: Male

DRUGS (12)
  1. VASTEN [Suspect]
     Indication: DYSLIPIDAEMIA
     Dosage: TABLETS.
     Route: 048
  2. PREDNISONE [Suspect]
     Indication: RENAL TRANSPLANT
     Route: 048
  3. XATRAL [Suspect]
     Indication: BENIGN PROSTATIC HYPERPLASIA
     Dosage: CONTROLLED/MODIFIED RELEASE TABLETS.
     Route: 048
  4. MYFORTIC [Suspect]
     Indication: RENAL TRANSPLANT
     Dosage: GASTRO-RESISTANT SUGAR-COATED TABLETS.
     Route: 048
  5. ALLOPURINOL [Suspect]
     Indication: GOUT
     Dosage: TABLETS.
     Route: 048
  6. PROGRAF [Suspect]
     Indication: RENAL TRANSPLANT
     Dosage: CAPSULES.
     Route: 048
  7. ISOPTIN [Suspect]
     Indication: HYPERTENSION
     Dosage: TABLETS.
     Route: 048
  8. NEXIUM [Suspect]
     Indication: GASTROOESOPHAGEAL REFLUX DISEASE
     Dosage: GASTRO-RESISTANT TABLETS.
     Route: 048
  9. KARDEGIC [Concomitant]
     Dosage: ORAL SUSPENSION.
     Route: 048
  10. LASILIX [Concomitant]
     Route: 048
  11. KAYEXALATE [Concomitant]
     Dosage: IRREGULAR ORAL SUSPENSION.
     Route: 048
  12. STILNOX [Concomitant]
     Dosage: FILM COATED TABLETS.
     Route: 048

REACTIONS (4)
  - ALVEOLITIS [None]
  - BRONCHITIS [None]
  - INTERSTITIAL LUNG DISEASE [None]
  - RENAL IMPAIRMENT [None]
